FAERS Safety Report 6326019-1 (Version None)
Quarter: 2009Q3

REPORT INFORMATION
  Report Type: 
  Country: None (occurrence: None)
  Receive Date: 20090824
  Receipt Date: 20090810
  Transmission Date: 20100115
  Serious: Yes (Other)
  Sender: FDA-Public Use
  Company Number: US-TYCO HEALTHCARE/MALLINCKRODT-T200901527

PATIENT

DRUGS (1)
  1. PAMELOR [Suspect]
     Indication: DEPRESSION

REACTIONS (5)
  - ATTENTION DEFICIT/HYPERACTIVITY DISORDER [None]
  - CRANIOSYNOSTOSIS [None]
  - DEAFNESS NEUROSENSORY [None]
  - DRUG EXPOSURE DURING PREGNANCY [None]
  - GENERALISED ANXIETY DISORDER [None]
